FAERS Safety Report 6539093-4 (Version None)
Quarter: 2010Q1

REPORT INFORMATION
  Report Type: 
  Country: None (occurrence: None)
  Receive Date: 20100115
  Receipt Date: 20100112
  Transmission Date: 20100710
  Serious: Yes (Death, Hospitalization, Other)
  Sender: FDA-Public Use
  Company Number: PHEH2009US13252

PATIENT
  Sex: Female
  Weight: 50 kg

DRUGS (8)
  1. EXJADE [Suspect]
     Indication: MYELODYSPLASTIC SYNDROME
     Dosage: 1000 MG, QD
     Route: 048
     Dates: start: 20090516
  2. VIDAZA [Suspect]
     Indication: MYELODYSPLASTIC SYNDROME
     Dosage: 20 MG/M2 IVQC X 5 DAYS; 4 CYCLES
     Route: 042
     Dates: start: 20090223, end: 20091026
  3. VIDAZA [Suspect]
     Indication: ACUTE MYELOID LEUKAEMIA
  4. DOCUSATE [Concomitant]
     Indication: CONSTIPATION
     Dosage: 250 MG, BID
     Route: 048
  5. CALVITA [Concomitant]
     Dosage: UNK
     Route: 048
  6. PROTONIX [Concomitant]
     Dosage: 40 MG, BID
     Route: 048
  7. MEGACE [Concomitant]
     Indication: INCREASED APPETITE
     Dosage: 200 MG, BID
     Route: 048
     Dates: start: 20090201
  8. HYDROXYUREA [Concomitant]
     Route: 048

REACTIONS (17)
  - ANAEMIA [None]
  - BLOOD COUNT ABNORMAL [None]
  - BLOOD IRON INCREASED [None]
  - CONVULSION [None]
  - ELECTROCARDIOGRAM QRS COMPLEX ABNORMAL [None]
  - ELECTROCARDIOGRAM ST-T CHANGE [None]
  - FATIGUE [None]
  - FEBRILE NEUTROPENIA [None]
  - HAEMATURIA [None]
  - MYELOID LEUKAEMIA [None]
  - MYOCARDIAL INFARCTION [None]
  - NEUTROPENIA [None]
  - PANCYTOPENIA [None]
  - SERUM FERRITIN INCREASED [None]
  - THROMBOCYTOPENIA [None]
  - VITAMIN B12 INCREASED [None]
  - WHITE BLOOD CELL COUNT INCREASED [None]
